FAERS Safety Report 7443129-6 (Version None)
Quarter: 2011Q2

REPORT INFORMATION
  Report Type: 
  Country: None (occurrence: None)
  Receive Date: 20110428
  Receipt Date: 20110425
  Transmission Date: 20111010
  Serious: Yes (Hospitalization)
  Sender: FDA-Public Use
  Company Number: A0805973A

PATIENT
  Age: 38 Year
  Sex: Female

DRUGS (1)
  1. AVANDIA [Suspect]
     Route: 048
     Dates: start: 20030101, end: 20081231

REACTIONS (5)
  - CEREBROVASCULAR ACCIDENT [None]
  - NEUROPATHY PERIPHERAL [None]
  - CARDIAC FAILURE CONGESTIVE [None]
  - PAIN [None]
  - RESPIRATORY FAILURE [None]
